FAERS Safety Report 4387786-X (Version None)
Quarter: 2004Q2

REPORT INFORMATION
  Report Type: 
  Country: None (occurrence: None)
  Receive Date: 20040630
  Receipt Date: 20040629
  Transmission Date: 20050107
  Serious: Yes (Death, Life-Threatening, Disabling, Other)
  Sender: FDA-Public Use
  Company Number: US-GLAXOSMITHKLINE-A0516430A

PATIENT
  Age: 17 Year
  Sex: Male

DRUGS (1)
  1. LAMICTAL [Suspect]
     Indication: BIPOLAR DISORDER
     Dosage: 25MG TWICE PER DAY
     Route: 048
     Dates: start: 20040622

REACTIONS (3)
  - COAGULOPATHY [None]
  - DEATH [None]
  - MULTI-ORGAN FAILURE [None]
